FAERS Safety Report 6553618-4 (Version None)
Quarter: 2010Q1

REPORT INFORMATION
  Report Type: 
  Country: None (occurrence: None)
  Receive Date: 20100127
  Receipt Date: 20100117
  Transmission Date: 20100710
  Serious: Yes (Death)
  Sender: FDA-Public Use
  Company Number: KR-PFIZER INC-2009284609

PATIENT
  Age: 67 Year
  Sex: Male
  Weight: 51 kg

DRUGS (4)
  1. VORICONAZOLE [Suspect]
     Indication: ASPERGILLOSIS
     Dosage: 400 MG, 2X/DAY
     Route: 042
     Dates: start: 20070615, end: 20070615
  2. VORICONAZOLE [Suspect]
     Dosage: 200 MG, 2X/DAY
     Route: 042
     Dates: start: 20070616, end: 20070618
  3. FORTUM [Concomitant]
     Indication: BACTERIAL INFECTION
     Dosage: 2 G, 3X/DAY
     Route: 042
     Dates: start: 20070602, end: 20070618
  4. CRAVIT [Concomitant]
     Indication: BACTERIAL INFECTION
     Dosage: 500 MG, 1X/DAY
     Route: 042
     Dates: start: 20070612, end: 20070618

REACTIONS (1)
  - PNEUMONIA [None]
